FAERS Safety Report 9843267 (Version 2)
Quarter: 2014Q1

REPORT INFORMATION
  Report Type: Report from Study
  Country: US (occurrence: US)
  Receive Date: 20140124
  Receipt Date: 20140312
  Transmission Date: 20141002
  Serious: Yes (Other)
  Sender: FDA-Public Use
  Company Number: US-ABBVIE-14P-163-1191807-00

PATIENT
  Age: 60 Year
  Sex: Female
  Weight: 90.8 kg

DRUGS (5)
  1. HUMIRA [Suspect]
     Indication: PSORIASIS
     Dates: start: 201108, end: 201110
  2. HUMIRA [Suspect]
     Dates: start: 201309
  3. HUMIRA [Suspect]
     Dates: start: 201310
  4. LISINOPRIL [Concomitant]
     Indication: HYPERTENSION
  5. TOPICAL CREAMS [Concomitant]
     Indication: PSORIASIS

REACTIONS (3)
  - Arthropathy [Recovering/Resolving]
  - Psoriasis [Not Recovered/Not Resolved]
  - Drug ineffective [Not Recovered/Not Resolved]
